FAERS Safety Report 9115576 (Version 1)
Quarter: 2013Q1

REPORT INFORMATION
  Report Type: Spontaneous
  Country: US (occurrence: None)
  Receive Date: 20130221
  Receipt Date: 20130221
  Transmission Date: 20140127
  Serious: No
  Sender: FDA-Public Use
  Company Number: None

PATIENT
  Age: 59 Year
  Sex: Female

DRUGS (1)
  1. LAMICTAL 25MG [Suspect]
     Dosage: 150MG BID ORAL
     Route: 048
     Dates: start: 20121210, end: 20130122

REACTIONS (6)
  - Somnolence [None]
  - Clumsiness [None]
  - Gait disturbance [None]
  - Ataxia [None]
  - Abasia [None]
  - Tremor [None]
